FAERS Safety Report 10220675 (Version 1)
Quarter: 2014Q2

REPORT INFORMATION
  Report Type: Spontaneous
  Country: IT (occurrence: None)
  Receive Date: 20140604
  Receipt Date: 20140604
  Transmission Date: 20141212
  Serious: Yes (Hospitalization)
  Sender: FDA-Public Use
  Company Number: FK201402086

PATIENT
  Age: 44 Year
  Sex: Female

DRUGS (1)
  1. PACLITAXEL (PACLITAXEL) (PACLITAXEL) [Suspect]
     Indication: BREAST CANCER
     Dosage: 100MG 1 WEEK, INTRAVENOUS (NOT OTHERWISE SPECIFIED)
     Route: 042
     Dates: start: 20140513, end: 20140513

REACTIONS (7)
  - Cough [None]
  - Dyspnoea [None]
  - Erythema [None]
  - Sense of oppression [None]
  - Flushing [None]
  - Infusion related reaction [None]
  - Chest discomfort [None]
